FAERS Safety Report 7198475-0 (Version None)
Quarter: 2010Q4

REPORT INFORMATION
  Report Type: 
  Country: None (occurrence: None)
  Receive Date: 20101223
  Receipt Date: 20101223
  Transmission Date: 20110411
  Serious: No
  Sender: FDA-Public Use
  Company Number: None

PATIENT
  Age: 55 Year
  Sex: Female
  Weight: 97.5234 kg

DRUGS (1)
  1. CIPROFLOXACIN [Suspect]
     Indication: HORDEOLUM
     Dosage: ONE TABLET TWICE DAILY PO
     Route: 048
     Dates: start: 20100930, end: 20101004

REACTIONS (2)
  - ARTHRALGIA [None]
  - BURSITIS [None]
